FAERS Safety Report 9161127 (Version 1)
Quarter: 2013Q1

REPORT INFORMATION
  Report Type: Report from Study
  Country: US (occurrence: US)
  Receive Date: 20130313
  Receipt Date: 20130313
  Transmission Date: 20140127
  Serious: Yes (Hospitalization)
  Sender: FDA-Public Use
  Company Number: US-009507513-1303USA003432

PATIENT
  Sex: Male

DRUGS (5)
  1. RIBAVIRIN [Suspect]
     Indication: CHRONIC HEPATITIS
     Dosage: 1000MG, QD
     Dates: start: 20120330, end: 20120503
  2. RIBAVIRIN [Suspect]
     Dosage: 800 MICROGRAM, QD
     Dates: start: 20120503
  3. PEGINTERFERON ALFA-2A [Suspect]
     Indication: CHRONIC HEPATITIS
     Dosage: 180 MICROGRAM 1 INJ, UNK
     Dates: start: 20120330, end: 20120511
  4. PEGINTERFERON ALFA-2A [Suspect]
     Dosage: 90 MICROGRAM 1 INJ, QW
     Dates: start: 20120511
  5. BOCEPREVIR [Suspect]
     Indication: CHRONIC HEPATITIS C
     Dosage: UNK, TID
     Dates: start: 20120428

REACTIONS (11)
  - Head injury [Unknown]
  - Fall [Unknown]
  - Neck injury [Unknown]
  - Limb injury [Unknown]
  - Pain [Unknown]
  - Nausea [Unknown]
  - Fatigue [Unknown]
  - White blood cell count decreased [Unknown]
  - Platelet count decreased [Unknown]
  - Red blood cell count decreased [Unknown]
  - Blood count abnormal [Unknown]
